FAERS Safety Report 10656423 (Version 1)
Quarter: 2014Q4

REPORT INFORMATION
  Report Type: Other
  Country: GB (occurrence: GB)
  Receive Date: 20141216
  Receipt Date: 20141216
  Transmission Date: 20150529
  Serious: Yes (Hospitalization)
  Sender: FDA-Public Use
  Company Number: GB-MYLANLABS-2014M1013317

PATIENT

DRUGS (4)
  1. EPIRUBICIN [Suspect]
     Active Substance: EPIRUBICIN
     Dosage: MOST RECENT DOSE OF 550 MG ON 03/JUN/2013
     Route: 042
     Dates: start: 20121026
  2. CISPLATIN. [Suspect]
     Active Substance: CISPLATIN
     Indication: GASTRIC CANCER
     Dosage: MOST RECENT DOSE OF 120 MG ON 03/JUN/2013
     Route: 042
     Dates: start: 20121026
  3. XELODA [Suspect]
     Active Substance: CAPECITABINE
     Indication: GASTRIC CANCER
     Dosage: MOST RECENT DOSE OF 52500 MG ON 03/JUN/2013
     Route: 048
     Dates: start: 20121026
  4. AVASTIN [Suspect]
     Active Substance: BEVACIZUMAB
     Indication: GASTRIC CANCER
     Dosage: MOST RECENT DOSE OF 560 MG ADMINISTERED ON 03/JUN/2013
     Route: 042
     Dates: start: 20121026

REACTIONS (1)
  - Headache [Recovered/Resolved]

NARRATIVE: CASE EVENT DATE: 20130807
